FAERS Safety Report 6578676-2 (Version None)
Quarter: 2010Q1

REPORT INFORMATION
  Report Type: 
  Country: None (occurrence: None)
  Receive Date: 20100211
  Receipt Date: 20100203
  Transmission Date: 20100710
  Serious: Yes (Hospitalization, Other)
  Sender: FDA-Public Use
  Company Number: JP-ABBOTT-10P-087-0624643-00

PATIENT
  Age: 78 Year
  Sex: Male

DRUGS (4)
  1. LEUPLIN SR FOR INJECTION [Suspect]
     Indication: PROSTATE CANCER STAGE III
     Route: 058
     Dates: start: 20070202, end: 20080704
  2. LEUPLIN SR FOR INJECTION [Suspect]
     Route: 058
     Dates: start: 20081219
  3. LEUPLIN SR FOR INJECTION [Suspect]
     Dates: start: 20070105
  4. CASODEX [Suspect]
     Indication: PROSTATE CANCER STAGE III
     Route: 048
     Dates: end: 20080104

REACTIONS (2)
  - GASTRIC ULCER [None]
  - HEPATIC FUNCTION ABNORMAL [None]
